FAERS Safety Report 10363174 (Version 2)
Quarter: 2014Q3

REPORT INFORMATION
  Report Type: Spontaneous
  Country: DE (occurrence: DE)
  Receive Date: 20140805
  Receipt Date: 20140910
  Transmission Date: 20150326
  Serious: Yes (Other)
  Sender: FDA-Public Use
  Company Number: DE-JNJFOC-20140716580

PATIENT
  Sex: Male
  Weight: 115 kg

DRUGS (1)
  1. DURAGESIC [Suspect]
     Active Substance: FENTANYL
     Indication: SOMATOFORM DISORDER
     Route: 062

REACTIONS (7)
  - Hyperhidrosis [Unknown]
  - Convulsion [Recovered/Resolved]
  - Tremor [Recovered/Resolved]
  - Drug withdrawal syndrome [Recovering/Resolving]
  - Wrong technique in drug usage process [Unknown]
  - Product quality issue [Unknown]
  - Incorrect drug administration duration [Unknown]
